FAERS Safety Report 6386905-3 (Version None)
Quarter: 2009Q4

REPORT INFORMATION
  Report Type: 
  Country: None (occurrence: None)
  Receive Date: 20091001
  Receipt Date: 20091001
  Transmission Date: 20100525
  Serious: Yes (Other)
  Sender: FDA-Public Use
  Company Number: None

PATIENT
  Sex: Female
  Weight: 54.4316 kg

DRUGS (1)
  1. ZINCUM COLD REMEDY NOT LISTED TARGET BRAND NDC 11673-807-01 [Suspect]
     Indication: NASOPHARYNGITIS
     Dosage: NONE LISTED / RECOMMENDED NONE RECOMMENDED PO
     Route: 048
     Dates: start: 20090927, end: 20090930

REACTIONS (1)
  - AGEUSIA [None]
